FAERS Safety Report 10268988 (Version 1)
Quarter: 2014Q2

REPORT INFORMATION
  Report Type: Spontaneous
  Country: US (occurrence: US)
  Receive Date: 20140630
  Receipt Date: 20140630
  Transmission Date: 20141212
  Serious: Yes (Other)
  Sender: FDA-Public Use
  Company Number: US-BAXTER-2014BAX035104

PATIENT
  Age: 31 Year
  Sex: Female

DRUGS (1)
  1. GAMMAGARD LIQUID [Suspect]
     Indication: IMMUNODEFICIENCY COMMON VARIABLE
     Route: 042
     Dates: start: 20140417, end: 20140417

REACTIONS (3)
  - Erythema [Recovered/Resolved]
  - Influenza like illness [Recovered/Resolved]
  - Migraine [Recovered/Resolved]
